FAERS Safety Report 10653920 (Version 5)
Quarter: 2015Q2

REPORT INFORMATION
  Report Type: Spontaneous
  Country: US (occurrence: US)
  Receive Date: 20141216
  Receipt Date: 20150615
  Transmission Date: 20150821
  Serious: Yes (Congenital Anomaly, Other)
  Sender: FDA-Public Use
  Company Number: US-009507513-1412USA002500

PATIENT
  Sex: Male

DRUGS (3)
  1. METHADONE HYDROCHLORIDE. [Concomitant]
     Active Substance: METHADONE HYDROCHLORIDE
     Route: 064
  2. TRUVADA [Suspect]
     Active Substance: EMTRICITABINE\TENOFOVIR DISOPROXIL FUMARATE
     Dosage: 500 MG, QD
     Route: 064
     Dates: start: 20140506
  3. ISENTRESS [Suspect]
     Active Substance: RALTEGRAVIR POTASSIUM
     Dosage: 800 MG, QD
     Route: 064
     Dates: start: 20140506

REACTIONS (6)
  - Trisomy 18 [Unknown]
  - Asphyxia [Not Recovered/Not Resolved]
  - Ventricular septal defect [Unknown]
  - Foetal distress syndrome [Not Recovered/Not Resolved]
  - Foetal exposure during pregnancy [Recovered/Resolved]
  - Single umbilical artery [Unknown]

NARRATIVE: CASE EVENT DATE: 2014
